FAERS Safety Report 9058357 (Version 2)
Quarter: 2013Q4

REPORT INFORMATION
  Report Type: Spontaneous
  Country: FR (occurrence: FR)
  Receive Date: 20130211
  Receipt Date: 20131230
  Transmission Date: 20140711
  Serious: Yes (Life-Threatening, Other)
  Sender: FDA-Public Use
  Company Number: FR-JNJFOC-20130202704

PATIENT
  Age: 77 Year
  Sex: Female

DRUGS (12)
  1. XARELTO [Suspect]
     Indication: PRODUCT USED FOR UNKNOWN INDICATION
     Route: 048
     Dates: start: 20130110, end: 20130114
  2. LEVOTHYROX [Concomitant]
     Route: 065
  3. DIFFU K [Concomitant]
     Route: 065
  4. LEVEMIR [Concomitant]
     Route: 065
  5. CORDARONE [Concomitant]
     Route: 065
  6. LOXEN [Concomitant]
     Route: 065
  7. LASILIX [Concomitant]
     Route: 065
  8. NOVONORM [Concomitant]
     Route: 065
  9. OMEPRAZOLE MAGNESIUM [Concomitant]
     Route: 065
  10. SEROPLEX [Concomitant]
     Route: 065
  11. MOPRAL [Concomitant]
     Route: 065
  12. PREVISCAN (FLUINDIONE) [Concomitant]
     Route: 065

REACTIONS (5)
  - Subdural haematoma [Recovered/Resolved with Sequelae]
  - Coma [Recovered/Resolved]
  - Anaemia [Not Recovered/Not Resolved]
  - Fall [Unknown]
  - Hemiparesis [Unknown]
